FAERS Safety Report 10160424 (Version 1)
Quarter: 2014Q2

REPORT INFORMATION
  Report Type: Spontaneous
  Country: TR (occurrence: TR)
  Receive Date: 20140508
  Receipt Date: 20140508
  Transmission Date: 20141212
  Serious: Yes (Hospitalization)
  Sender: FDA-Public Use
  Company Number: TR-ASTRAZENECA-2014SE29949

PATIENT
  Age: 73 Year
  Sex: Female

DRUGS (1)
  1. OMEPRAZOLE [Suspect]
     Indication: PEPTIC ULCER
     Route: 048

REACTIONS (4)
  - Generalised tonic-clonic seizure [Unknown]
  - Hypocalcaemia [Recovered/Resolved]
  - Hyperparathyroidism secondary [Unknown]
  - Hypomagnesaemia [Recovered/Resolved]
